FAERS Safety Report 20897789 (Version 1)
Quarter: 2022Q2

REPORT INFORMATION
  Report Type: Report from Study
  Country: US (occurrence: US)
  Receive Date: 20220531
  Receipt Date: 20220531
  Transmission Date: 20220721
  Serious: Yes (Hospitalization, Other)
  Sender: FDA-Public Use
  Company Number: US-JCAR017-FOL-001-1031004-20220217-0004SG

PATIENT
  Age: 72 Year
  Sex: Male
  Weight: 68 kg

DRUGS (95)
  1. CYCLOPHOSPHAMIDE [Suspect]
     Active Substance: CYCLOPHOSPHAMIDE
     Indication: Marginal zone lymphoma
     Route: 042
     Dates: start: 20220106, end: 20220108
  2. FLUDARABINE [Suspect]
     Active Substance: FLUDARABINE PHOSPHATE
     Indication: Marginal zone lymphoma
     Route: 042
     Dates: start: 20220106, end: 20220108
  3. SIMETHICONE (DIMETHICONE) [Concomitant]
     Active Substance: DIMETHICONE
     Indication: Adverse event
     Dosage: 80 MG?FREQUENCY : PRN
     Route: 048
     Dates: start: 20220118, end: 20220203
  4. CALCIUM CARBONATE [Concomitant]
     Active Substance: CALCIUM CARBONATE
     Indication: Adverse event
     Dosage: 200 MG?FREQUENCY : PRN
     Route: 048
     Dates: start: 20220119, end: 20220203
  5. CALCIUM CARBONATE [Concomitant]
     Active Substance: CALCIUM CARBONATE
     Indication: Prophylaxis
     Dosage: 400 MG
     Route: 048
     Dates: start: 20220128, end: 20220130
  6. CALCIUM CARBONATE [Concomitant]
     Active Substance: CALCIUM CARBONATE
     Dosage: 400 MG
     Route: 048
     Dates: start: 20220131
  7. ACETYLCYSTEINE [Concomitant]
     Active Substance: ACETYLCYSTEINE
     Indication: Adverse event
     Dosage: 600 MG
     Route: 048
     Dates: start: 20220119, end: 20220128
  8. ACETYLCYSTEINE [Concomitant]
     Active Substance: ACETYLCYSTEINE
     Indication: Prophylaxis
     Dosage: 600 MG
     Route: 048
     Dates: start: 20220129, end: 20220217
  9. SODIUM CHLORIDE [Concomitant]
     Active Substance: SODIUM CHLORIDE
     Indication: Adverse event
     Dosage: 1 L?FREQUENCY : ONCE
     Route: 042
     Dates: start: 20220114, end: 20220114
  10. SODIUM CHLORIDE [Concomitant]
     Active Substance: SODIUM CHLORIDE
     Dosage: 500 ML?FREQUENCY : ONCE
     Route: 042
     Dates: start: 20220116, end: 20220116
  11. SODIUM CHLORIDE [Concomitant]
     Active Substance: SODIUM CHLORIDE
     Dosage: 1 L?FREQUENCY : ONCE
     Route: 042
     Dates: start: 20220117, end: 20220117
  12. SODIUM CHLORIDE [Concomitant]
     Active Substance: SODIUM CHLORIDE
     Dosage: 500 ML?FREQUENCY : ONCE
     Route: 042
     Dates: start: 20220118, end: 20220118
  13. SODIUM CHLORIDE [Concomitant]
     Active Substance: SODIUM CHLORIDE
     Dosage: 1 L?FREQUENCY : ONCE
     Route: 042
     Dates: start: 20220118, end: 20220118
  14. SODIUM CHLORIDE [Concomitant]
     Active Substance: SODIUM CHLORIDE
     Dosage: 100 ML/H?FREQUENCY : CONTINUOUS
     Route: 042
     Dates: start: 20220119, end: 20220119
  15. SODIUM CHLORIDE [Concomitant]
     Active Substance: SODIUM CHLORIDE
     Dosage: 150 ML/H?FREQUENCY : CONTINUOUS
     Route: 042
     Dates: start: 20220119, end: 20220121
  16. ACETAMINOPHEN [Concomitant]
     Active Substance: ACETAMINOPHEN
     Indication: Adverse event
     Dosage: 650 MG?FREQUENCY : ONCE
     Route: 048
     Dates: start: 20220113, end: 20220113
  17. ACETAMINOPHEN [Concomitant]
     Active Substance: ACETAMINOPHEN
     Indication: Prophylaxis
     Dosage: 650 MG?FREQUENCY : ONCE
     Route: 048
     Dates: start: 20220115, end: 20220115
  18. ACETAMINOPHEN [Concomitant]
     Active Substance: ACETAMINOPHEN
     Dosage: 650 MG
     Route: 048
     Dates: start: 20220116, end: 20220116
  19. ACETAMINOPHEN [Concomitant]
     Active Substance: ACETAMINOPHEN
     Dosage: 650 MG
     Route: 048
     Dates: start: 20220117, end: 20220117
  20. ACETAMINOPHEN [Concomitant]
     Active Substance: ACETAMINOPHEN
     Dosage: 650 MG
     Route: 048
     Dates: start: 20220118, end: 20220118
  21. ACETAMINOPHEN [Concomitant]
     Active Substance: ACETAMINOPHEN
     Dosage: 650 MG?FREQUENCY : ONCE
     Route: 048
     Dates: start: 20220119, end: 20220119
  22. ACETAMINOPHEN [Concomitant]
     Active Substance: ACETAMINOPHEN
     Dosage: 650 MG?FREQUENCY : ONCE
     Route: 048
     Dates: start: 20220120, end: 20220120
  23. ACETAMINOPHEN [Concomitant]
     Active Substance: ACETAMINOPHEN
     Dosage: 650 MG
     Route: 048
     Dates: start: 20220121, end: 20220121
  24. ACETAMINOPHEN [Concomitant]
     Active Substance: ACETAMINOPHEN
     Dosage: 650 MG?FREQUENCY : ONCE
     Route: 048
     Dates: start: 20220125, end: 20220125
  25. ACYCLOVIR [Concomitant]
     Active Substance: ACYCLOVIR
     Indication: Prophylaxis
     Dosage: 400 MG
     Route: 048
     Dates: start: 20220111
  26. ALLOPURINOL [Concomitant]
     Active Substance: ALLOPURINOL
     Indication: Adverse event
     Dosage: 300 MG
     Route: 048
     Dates: start: 20220119, end: 20220127
  27. ALLOPURINOL [Concomitant]
     Active Substance: ALLOPURINOL
     Indication: Prophylaxis
     Dosage: 300 MG
     Route: 048
     Dates: start: 20220128, end: 20220217
  28. AMINOCAPROIC ACID [Concomitant]
     Active Substance: AMINOCAPROIC ACID
     Indication: Adverse event
     Dosage: 1 APPLICATION?FREQUENCY : ONCE
     Route: 061
     Dates: start: 20220124, end: 20220124
  29. AMLODIPINE [Concomitant]
     Active Substance: AMLODIPINE BESYLATE
     Indication: Adverse event
     Dosage: 5 MG
     Route: 048
     Dates: start: 20220130, end: 20220217
  30. BENZOCAINE-MENTHOL [Concomitant]
     Indication: Adverse event
     Dosage: 15-3.6 MG?FREQUENCY : PRN
     Route: 002
     Dates: start: 20220115, end: 20220203
  31. CALCIUM GLUCONATE [Concomitant]
     Active Substance: CALCIUM GLUCONATE
     Indication: Adverse event
     Dosage: 1,000 MG?FREQUENCY : ONCE
     Route: 042
     Dates: start: 20220119, end: 20220119
  32. CALCIUM GLUCONATE [Concomitant]
     Active Substance: CALCIUM GLUCONATE
     Dosage: 1000 MG
     Route: 042
     Dates: start: 20220120, end: 20220120
  33. CALCIUM GLUCONATE [Concomitant]
     Active Substance: CALCIUM GLUCONATE
     Dosage: CALCIUM GLUCONATE IN NACL
     Route: 042
     Dates: start: 20220121, end: 20220121
  34. CALCIUM GLUCONATE [Concomitant]
     Active Substance: CALCIUM GLUCONATE
     Route: 042
     Dates: start: 20220122, end: 20220122
  35. CALCIUM GLUCONATE [Concomitant]
     Active Substance: CALCIUM GLUCONATE
     Route: 042
     Dates: start: 20220127, end: 20220127
  36. CARBAMIDE PEROXIDE [Concomitant]
     Active Substance: CARBAMIDE PEROXIDE
     Indication: Adverse event
     Dosage: 5 UNITS NOT SPECIFIED
     Route: 050
     Dates: start: 20220126, end: 20220131
  37. CRYOPRECIPITATED ANTIHEMOPHILIC FACTOR (HUMAN) [Concomitant]
     Active Substance: CRYOPRECIPITATED ANTIHEMOPHILIC FACTOR (HUMAN)
     Indication: Adverse event
     Dosage: 1 U?FREQUENCY : ONCE
     Route: 042
     Dates: start: 20220120, end: 20220120
  38. CRYOPRECIPITATED ANTIHEMOPHILIC FACTOR (HUMAN) [Concomitant]
     Active Substance: CRYOPRECIPITATED ANTIHEMOPHILIC FACTOR (HUMAN)
     Dosage: 1 U?FREQUENCY : ONCE
     Route: 042
     Dates: start: 20220124, end: 20220124
  39. CRYOPRECIPITATED ANTIHEMOPHILIC FACTOR (HUMAN) [Concomitant]
     Active Substance: CRYOPRECIPITATED ANTIHEMOPHILIC FACTOR (HUMAN)
     Dosage: 1 U?FREQUENCY : ONCE
     Route: 042
     Dates: start: 20220126, end: 20220126
  40. CRYOPRECIPITATED ANTIHEMOPHILIC FACTOR (HUMAN) [Concomitant]
     Active Substance: CRYOPRECIPITATED ANTIHEMOPHILIC FACTOR (HUMAN)
     Dosage: 1 U?FREQUENCY : ONCE
     Route: 042
     Dates: start: 20220128, end: 20220128
  41. DESMOPRESSIN [Concomitant]
     Active Substance: DESMOPRESSIN
     Indication: Adverse event
     Dosage: 2 SPRAY
     Route: 045
     Dates: start: 20220225
  42. DIPHENHYDRAMINE [Concomitant]
     Active Substance: DIPHENHYDRAMINE
     Indication: Prophylaxis
     Dosage: 25 MG?FREQUENCY : ONCE
     Route: 048
     Dates: start: 20220125, end: 20220125
  43. ERGOCALCIFEROL [Concomitant]
     Active Substance: ERGOCALCIFEROL
     Indication: Adverse event
     Dosage: 1.250 UG
     Route: 048
     Dates: start: 20220111, end: 20220203
  44. FENTANYL [Concomitant]
     Active Substance: FENTANYL
     Indication: Adverse event
     Dosage: 50 G
     Route: 042
     Dates: start: 20220120, end: 20220120
  45. FUROSEMIDE [Concomitant]
     Active Substance: FUROSEMIDE
     Indication: Adverse event
     Dosage: 80 MG?FREQUENCY : ONCE
     Route: 042
     Dates: start: 20220120, end: 20220120
  46. ISAVUCONAZONIUM SULFATE [Concomitant]
     Active Substance: ISAVUCONAZONIUM SULFATE
     Indication: Prophylaxis
     Dosage: 372 MG
     Route: 048
     Dates: start: 20220111, end: 20220119
  47. KAYEXALATE [Concomitant]
     Active Substance: SODIUM POLYSTYRENE SULFONATE
     Indication: Adverse event
     Dosage: 15 G?FREQUENCY : ONCE
     Route: 048
     Dates: start: 20220119, end: 20220119
  48. LACTATED RINGERS SOLUTION [Concomitant]
     Active Substance: CALCIUM CHLORIDE\POTASSIUM CHLORIDE\SODIUM CHLORIDE\SODIUM LACTATE
     Indication: Adverse event
     Dosage: 999 ML?FREQUENCY : ONCE
     Route: 042
     Dates: start: 20220119, end: 20220119
  49. LACTATED RINGERS SOLUTION [Concomitant]
     Active Substance: CALCIUM CHLORIDE\POTASSIUM CHLORIDE\SODIUM CHLORIDE\SODIUM LACTATE
     Dosage: 100 ML/H?FREQUENCY : CONTINUOUS
     Route: 042
     Dates: start: 20220119, end: 20220119
  50. LACTATED RINGERS SOLUTION [Concomitant]
     Active Substance: CALCIUM CHLORIDE\POTASSIUM CHLORIDE\SODIUM CHLORIDE\SODIUM LACTATE
     Dosage: 999 ML?FREQUENCY : ONCE
     Route: 042
     Dates: start: 20220121, end: 20220121
  51. LACTULOSE [Concomitant]
     Active Substance: LACTULOSE
     Indication: Adverse event
     Dosage: 20 G
     Route: 048
     Dates: start: 20220123, end: 20220124
  52. LEVETIRACETAM [Concomitant]
     Active Substance: LEVETIRACETAM
     Indication: Prophylaxis
     Dosage: 500 MG
     Route: 048
     Dates: start: 20220218
  53. MEROPENEM [Concomitant]
     Active Substance: MEROPENEM
     Indication: Prophylaxis
     Dosage: 1000 MG
     Route: 042
     Dates: start: 20220119, end: 20220123
  54. MICAFUNGIN [Concomitant]
     Active Substance: MICAFUNGIN
     Indication: Prophylaxis
     Dosage: 100 MG
     Route: 042
     Dates: start: 20220120, end: 20220203
  55. ONDANSETRON [Concomitant]
     Active Substance: ONDANSETRON
     Indication: Adverse event
     Dosage: 8 MG?FREQUENCY : PRN
     Route: 048
     Dates: start: 20220108, end: 20220119
  56. ONDANSETRON [Concomitant]
     Active Substance: ONDANSETRON
     Indication: Prophylaxis
     Dosage: 8 MG?FREQUENCY : PRN
     Route: 048
     Dates: start: 20220120, end: 20220218
  57. OXYGEN [Concomitant]
     Active Substance: OXYGEN
     Indication: Adverse event
     Dosage: 2 L?FREQUENCY : CONTINUOUS
     Route: 055
     Dates: start: 20220116, end: 20220116
  58. OXYGEN [Concomitant]
     Active Substance: OXYGEN
     Dosage: 1 L?FREQUENCY : CONTINUOUS
     Route: 055
     Dates: start: 20220117, end: 20220117
  59. PANTOPRAZOLE [Concomitant]
     Active Substance: PANTOPRAZOLE
     Indication: Gastrooesophageal reflux disease
     Dosage: 40 MG
     Route: 048
     Dates: start: 20220111, end: 20220123
  60. PANTOPRAZOLE [Concomitant]
     Active Substance: PANTOPRAZOLE
     Dosage: 40 MG
     Route: 048
     Dates: start: 20220123, end: 20220131
  61. PANTOPRAZOLE [Concomitant]
     Active Substance: PANTOPRAZOLE
     Dosage: 40 MG
     Route: 048
     Dates: start: 20220201
  62. POLYETHYLENE GLYCOL [Concomitant]
     Active Substance: POLYETHYLENE GLYCOL
     Indication: Adverse event
     Dosage: 17 G?FREQUENCY : PRN
     Route: 048
     Dates: start: 20220111, end: 20220122
  63. POLYETHYLENE GLYCOL [Concomitant]
     Active Substance: POLYETHYLENE GLYCOL
     Indication: Prophylaxis
     Dosage: 17 G
     Route: 048
     Dates: start: 20220122, end: 20220125
  64. POLYETHYLENE GLYCOL [Concomitant]
     Active Substance: POLYETHYLENE GLYCOL
     Dosage: 17 G
     Route: 048
     Dates: start: 20220126, end: 20220331
  65. PRAVASTATIN [Concomitant]
     Active Substance: PRAVASTATIN
     Indication: Hyperlipidaemia
     Dosage: 10 MG
     Route: 048
     Dates: start: 20210716, end: 20220121
  66. PRAVASTATIN [Concomitant]
     Active Substance: PRAVASTATIN
     Dosage: 10 MG
     Route: 048
     Dates: start: 20220131
  67. RASBURICASE [Concomitant]
     Active Substance: RASBURICASE
     Indication: Adverse event
     Dosage: 3 MG?FREQUENCY : ONCE
     Route: 042
     Dates: start: 20220119, end: 20220119
  68. SEVELAMER CARBONATE [Concomitant]
     Active Substance: SEVELAMER CARBONATE
     Indication: Adverse event
     Dosage: 800 MG
     Route: 048
     Dates: start: 20220118, end: 20220119
  69. SEVELAMER CARBONATE [Concomitant]
     Active Substance: SEVELAMER CARBONATE
     Dosage: 1600 MG
     Route: 048
     Dates: start: 20220119, end: 20220122
  70. SEVELAMER CARBONATE [Concomitant]
     Active Substance: SEVELAMER CARBONATE
     Dosage: 2400 MG
     Route: 048
     Dates: start: 20220122, end: 20220202
  71. SEVELAMER CARBONATE [Concomitant]
     Active Substance: SEVELAMER CARBONATE
     Dosage: 1600 MG
     Route: 048
     Dates: start: 20220202, end: 20220217
  72. SODIUM ZIRCONIUM CYCLOSILICATE [Concomitant]
     Active Substance: SODIUM ZIRCONIUM CYCLOSILICATE
     Indication: Adverse event
     Dosage: 10 G?FREQUENCY : ONCE
     Route: 048
     Dates: start: 20220126, end: 20220126
  73. SUCRALFATE [Concomitant]
     Active Substance: SUCRALFATE
     Indication: Gastrooesophageal reflux disease
     Dosage: 1 G
     Route: 048
     Dates: start: 20220123, end: 20220131
  74. TORSEMIDE [Concomitant]
     Active Substance: TORSEMIDE
     Indication: Adverse event
     Dosage: 60 MG?FREQUENCY : ONCE
     Route: 048
     Dates: start: 20220127, end: 20220127
  75. TORSEMIDE [Concomitant]
     Active Substance: TORSEMIDE
     Indication: Adverse event
     Dosage: 60 MG?FREQUENCY : ONCE
     Route: 048
     Dates: start: 20220129, end: 20220129
  76. URSODIOL [Concomitant]
     Active Substance: URSODIOL
     Indication: Adverse event
     Dosage: 300 MG
     Route: 048
     Dates: start: 20220119, end: 20220131
  77. LOVENOX [Concomitant]
     Active Substance: ENOXAPARIN SODIUM
     Indication: Prophylaxis
     Dosage: 40 MG X 1 X 1 DAYS
     Route: 058
     Dates: start: 20220111, end: 20220119
  78. MEDICATED LIP PROTECTANT [Concomitant]
     Indication: Prophylaxis
     Dosage: FREQUENCY TEXT: PRN?1 APPLICATION X PRN
     Route: 061
     Dates: start: 20220110, end: 20220203
  79. PIPERACILLIN AND TAZOBACTAM [Concomitant]
     Active Substance: PIPERACILLIN SODIUM\TAZOBACTAM SODIUM
     Indication: Prophylaxis
     Dosage: 3.375 G X 1 X 8 HOURS
     Route: 042
     Dates: start: 20220116, end: 20220119
  80. SODIUM CHLORIDE NASAL SPRAY 0.65% [Concomitant]
     Indication: Prophylaxis
     Dosage: FREQUENCY TEXT: PRN?1 SPRAY X PRN
     Route: 055
     Dates: start: 20220113, end: 20220203
  81. SULFAMETHOXAZOLE\TRIMETHOPRIM [Concomitant]
     Active Substance: SULFAMETHOXAZOLE\TRIMETHOPRIM
     Indication: Prophylaxis
     Dosage: 800-160 MG X 3 X 1 WEEKS
     Dates: start: 20220112, end: 20220121
  82. SULFAMETHOXAZOLE\TRIMETHOPRIM [Concomitant]
     Active Substance: SULFAMETHOXAZOLE\TRIMETHOPRIM
     Dosage: 400-80 MG X 3 X 1 WEEKS
     Dates: start: 20220124
  83. DEXAMETHASONE [Concomitant]
     Active Substance: DEXAMETHASONE
     Indication: Adverse event
     Route: 042
     Dates: start: 20220118, end: 20220128
  84. DEXAMETHASONE [Concomitant]
     Active Substance: DEXAMETHASONE
     Route: 048
     Dates: start: 20220129, end: 20220129
  85. DEXAMETHASONE [Concomitant]
     Active Substance: DEXAMETHASONE
     Route: 048
     Dates: start: 20220130, end: 20220217
  86. DEXTROSE [Concomitant]
     Active Substance: DEXTROSE
     Indication: Adverse event
     Route: 042
     Dates: start: 20220120, end: 20220120
  87. DEXTROSE [Concomitant]
     Active Substance: DEXTROSE
     Route: 042
     Dates: start: 20220119, end: 20220120
  88. FOLIC ACID-VITAMIN B6-VITAMIN B12 [Concomitant]
     Indication: Prophylaxis
     Dosage: 2.5 -25-2MG
     Route: 048
     Dates: start: 20220110, end: 20220203
  89. PRIVIGEN [Concomitant]
     Active Substance: HUMAN IMMUNOGLOBULIN G
     Indication: Adverse event
     Route: 042
     Dates: start: 20220125, end: 20220125
  90. INSULIN NOS [Concomitant]
     Active Substance: INSULIN NOS
     Indication: Adverse event
     Dosage: 5 UNITS NOT SPECIFIED
     Route: 042
     Dates: start: 20220119, end: 20220119
  91. INSULIN NOS [Concomitant]
     Active Substance: INSULIN NOS
     Dosage: 10 UNITS NOT SPECIFIED
     Route: 042
     Dates: start: 20220120, end: 20220120
  92. INSULIN NOS [Concomitant]
     Active Substance: INSULIN NOS
     Dosage: 5 UNITS NOT SPECIFIED
     Route: 042
     Dates: start: 20220120, end: 20220120
  93. LIDOCAINE [Concomitant]
     Active Substance: LIDOCAINE
     Indication: Adverse event
     Route: 023
     Dates: start: 20220120, end: 20220120
  94. NYSTATIN [Concomitant]
     Active Substance: NYSTATIN
     Indication: Prophylaxis
     Dosage: 50000 UNITS NOT SPECIFIED
     Route: 048
     Dates: start: 20220217
  95. SODIUM BICARBONATE [Concomitant]
     Active Substance: SODIUM BICARBONATE
     Indication: Adverse event
     Route: 042
     Dates: start: 20220119, end: 20220120

REACTIONS (1)
  - Neurotoxicity [Recovered/Resolved]

NARRATIVE: CASE EVENT DATE: 20220212
